FAERS Safety Report 4402164-2 (Version None)
Quarter: 2004Q3

REPORT INFORMATION
  Report Type: 
  Country: None (occurrence: None)
  Receive Date: 20040720
  Receipt Date: 20040712
  Transmission Date: 20050211
  Serious: Yes (Other)
  Sender: FDA-Public Use
  Company Number: PHEH2004US07543

PATIENT
  Sex: Female

DRUGS (3)
  1. MIACALCIN [Suspect]
  2. FOSAMAX [Concomitant]
  3. CITRACAL + D [Concomitant]

REACTIONS (3)
  - DRUG INEFFECTIVE [None]
  - SPINAL FRACTURE [None]
  - SURGERY [None]
